FAERS Safety Report 7843949-X (Version None)
Quarter: 2011Q4

REPORT INFORMATION
  Report Type: 
  Country: None (occurrence: None)
  Receive Date: 20111025
  Receipt Date: 20111010
  Transmission Date: 20120403
  Serious: Yes (Hospitalization, Other)
  Sender: FDA-Public Use
  Company Number: FR-WATSON-2011-15332

PATIENT
  Age: 48 Year
  Sex: Female

DRUGS (5)
  1. DOXORUBICIN HCL [Suspect]
     Indication: B-CELL LYMPHOMA RECURRENT
     Dosage: UNKNOWN
     Route: 065
  2. CYCLOPHOSPHAMIDE [Suspect]
     Indication: B-CELL LYMPHOMA RECURRENT
     Dosage: UNKNOWN
     Route: 065
  3. VINCRISTINE [Suspect]
     Indication: B-CELL LYMPHOMA RECURRENT
     Dosage: UNKNOWN
     Route: 065
  4. PREDNISOLONE [Suspect]
     Indication: B-CELL LYMPHOMA RECURRENT
     Dosage: UNKNOWN
     Route: 065
  5. RITUXIMAB [Suspect]
     Indication: B-CELL LYMPHOMA RECURRENT
     Dosage: 375 MG/M2 ON DAY 1
     Route: 065
     Dates: start: 20081001

REACTIONS (4)
  - INCORRECT ROUTE OF DRUG ADMINISTRATION [None]
  - ESCHERICHIA INFECTION [None]
  - LUNG ABSCESS [None]
  - PULMONARY NECROSIS [None]
